FAERS Safety Report 24441415 (Version 2)
Quarter: 2024Q4

REPORT INFORMATION
  Report Type: Report from Study
  Country: CR (occurrence: CR)
  Receive Date: 20241016
  Receipt Date: 20241017
  Transmission Date: 20250115
  Serious: No
  Sender: ROCHE
  Company Number: CR-ROCHE-3493814

PATIENT
  Age: 34 Year
  Sex: Male
  Weight: 61.5 kg

DRUGS (2)
  1. HEMLIBRA [Suspect]
     Active Substance: EMICIZUMAB-KXWH
     Indication: Factor VIII deficiency
     Dosage: 1.5 MG/KG - THREE BOTTLES OF 30 MG (REAL DOSE OF 92.25MG)
     Route: 058
  2. HEMLIBRA [Suspect]
     Active Substance: EMICIZUMAB-KXWH
     Dosage: 3 BOTTLES OF 30 MG - CURRENT TREATMENT
     Route: 058

REACTIONS (1)
  - Muscle contracture [Recovered/Resolved]

NARRATIVE: CASE EVENT DATE: 20231117
